FAERS Safety Report 9650906 (Version 2)
Quarter: 2014Q1

REPORT INFORMATION
  Report Type: Spontaneous
  Country: US (occurrence: US)
  Receive Date: 20131029
  Receipt Date: 20140206
  Transmission Date: 20141002
  Serious: No
  Sender: FDA-Public Use
  Company Number: US-PFIZER INC-2013304716

PATIENT
  Age: 65 Year
  Sex: Male
  Weight: 70.3 kg

DRUGS (5)
  1. VIAGRA [Suspect]
     Indication: ERECTILE DYSFUNCTION
     Dosage: 50 MG, AS NEEDED
     Dates: end: 201401
  2. NORCO [Concomitant]
     Indication: MUSCULOSKELETAL PAIN
     Dosage: (HYDROCODONE BITARTRATE 10MG /PARACETAMOL 325 MG), 1X/DAY
  3. NORCO [Concomitant]
     Indication: PAIN IN EXTREMITY
  4. NORCO [Concomitant]
     Indication: PAIN IN EXTREMITY
  5. FLEXERIL [Concomitant]
     Dosage: UNK

REACTIONS (2)
  - Nasopharyngitis [Unknown]
  - Oropharyngeal pain [Unknown]
